FAERS Safety Report 8488777-X (Version None)
Quarter: 2012Q3

REPORT INFORMATION
  Report Type: 
  Country: None (occurrence: None)
  Receive Date: 20120705
  Receipt Date: 20120629
  Transmission Date: 20120928
  Serious: Yes (Death)
  Sender: FDA-Public Use
  Company Number: RU-ROCHE-1083923

PATIENT
  Sex: Male
  Weight: 75 kg

DRUGS (4)
  1. ASPIRIN [Concomitant]
     Route: 048
     Dates: start: 20120626, end: 20120627
  2. PLAVIX [Concomitant]
     Indication: MYOCARDIAL INFARCTION
     Route: 048
     Dates: start: 20120626, end: 20120627
  3. CAPTOPRIL [Concomitant]
     Route: 048
     Dates: start: 20120626, end: 20120627
  4. ACTIVASE [Suspect]
     Indication: ACUTE MYOCARDIAL INFARCTION
     Route: 042
     Dates: start: 20120626

REACTIONS (1)
  - MYOCARDIAL HAEMORRHAGE [None]
